FAERS Safety Report 15293644 (Version 1)
Quarter: 2018Q3

REPORT INFORMATION
  Report Type: Spontaneous
  Country: US (occurrence: US)
  Receive Date: 20180807
  Receipt Date: 20180807
  Transmission Date: 20181010
  Serious: Yes (Hospitalization)
  Sender: FDA-Public Use
  Company Number: None

PATIENT
  Age: 83 Year
  Sex: Male
  Weight: 77.94 kg

DRUGS (1)
  1. PEMBROLIZUMAB. [Suspect]
     Active Substance: PEMBROLIZUMAB
     Indication: METASTATIC CARCINOMA OF THE BLADDER
     Dosage: 200 MG EVERY 3 WEEKS; INTRAVENOUS?
     Route: 042
     Dates: start: 20180625, end: 20180716

REACTIONS (2)
  - Weight decreased [None]
  - Blood glucose increased [None]

NARRATIVE: CASE EVENT DATE: 20180806
